FAERS Safety Report 5287447-9 (Version None)
Quarter: 2007Q1

REPORT INFORMATION
  Report Type: 
  Country: None (occurrence: None)
  Receive Date: 20070116
  Receipt Date: 20060926
  Transmission Date: 20070707
  Serious: No
  Sender: FDA-Public Use
  Company Number: 2006SP003418

PATIENT
  Age: 68 Year
  Sex: Female
  Weight: 72.5755 kg

DRUGS (4)
  1. LUNESTA [Suspect]
     Indication: SLEEP DISORDER
     Dosage: 2 MG PRN ORAL
     Route: 048
     Dates: start: 20060101
  2. FOSAMAX [Concomitant]
  3. HYDROXYZINE [Concomitant]
  4. ATENOLOL [Concomitant]

REACTIONS (1)
  - MIDDLE INSOMNIA [None]
